FAERS Safety Report 8900438 (Version 1)
Quarter: 2012Q4

REPORT INFORMATION
  Report Type: 
  Country: US (occurrence: US)
  Receive Date: 20121108
  Receipt Date: 20121108
  Transmission Date: 20130627
  Serious: No
  Sender: FDA-Public Use
  Company Number: US-AMGEN-USASP2012038162

PATIENT
  Sex: Female
  Weight: 52.61 kg

DRUGS (2)
  1. ENBREL [Suspect]
     Indication: PRODUCT USED FOR UNKNOWN INDICATION
     Dosage: UNK
  2. STELARA [Concomitant]
     Dosage: 45 mg, UNK at weeks 0 and 4
     Route: 058

REACTIONS (1)
  - Drug ineffective [Unknown]
